FAERS Safety Report 14819110 (Version 1)
Quarter: 2018Q2

REPORT INFORMATION
  Report Type: Spontaneous
  Country: DE (occurrence: DE)
  Receive Date: 20180427
  Receipt Date: 20180427
  Transmission Date: 20180711
  Serious: Yes (Other)
  Sender: FDA-Public Use
  Company Number: DE-TEVA-2018-DE-872537

PATIENT
  Age: 56 Year
  Sex: Female

DRUGS (2)
  1. OFLOXACIN. [Concomitant]
     Active Substance: OFLOXACIN
     Indication: BACTERIAL INFECTION
     Route: 048
  2. TEMAZEP-CT 20 MG KAPSELN [Suspect]
     Active Substance: TEMAZEPAM
     Indication: PAIN
     Dosage: 20 MILLIGRAM DAILY;
     Route: 048
     Dates: start: 201802, end: 2018

REACTIONS (3)
  - Intestinal prolapse [Unknown]
  - Intentional product use issue [Unknown]
  - Feeling abnormal [None]
